FAERS Safety Report 7211258-8 (Version None)
Quarter: 2011Q1

REPORT INFORMATION
  Report Type: 
  Country: None (occurrence: None)
  Receive Date: 20110105
  Receipt Date: 20101117
  Transmission Date: 20110831
  Serious: No
  Sender: FDA-Public Use
  Company Number: US-JNJFOC-20101106265

PATIENT
  Sex: Female

DRUGS (6)
  1. SYNTHROID [Concomitant]
     Indication: HYPOTHYROIDISM
     Route: 048
  2. GEODON [Concomitant]
     Route: 030
  3. ZYPREXA ZYDIS [Concomitant]
     Route: 048
  4. ASENAPINE [Concomitant]
     Route: 048
  5. INVEGA SUSTENNA [Suspect]
     Indication: SCHIZOAFFECTIVE DISORDER
     Route: 030
  6. SEROQUEL [Concomitant]
     Dosage: 400 MG IN AM AND 300 MG AT NIGHT
     Route: 048

REACTIONS (1)
  - DRUG DOSE OMISSION [None]
